FAERS Safety Report 8765283 (Version 2)
Quarter: 2013Q1

REPORT INFORMATION
  Report Type: Spontaneous
  Country: JP (occurrence: JP)
  Receive Date: 20120831
  Receipt Date: 20130131
  Transmission Date: 20140127
  Serious: No
  Sender: FDA-Public Use
  Company Number: JP-SANOFI-AVENTIS-2012SA060813

PATIENT
  Age: 46 Year
  Sex: Female
  Weight: 48.5 kg

DRUGS (4)
  1. TAXOTERE [Suspect]
     Indication: BREAST CANCER
     Dosage: FIRST COURSE
     Route: 042
     Dates: start: 20120807, end: 20120807
  2. TAXOTERE [Suspect]
     Indication: BREAST CANCER
     Dosage: SECOND COURSE
     Route: 042
     Dates: start: 20120710, end: 20120710
  3. ENDOXAN [Concomitant]
     Indication: BREAST CANCER
     Route: 041
     Dates: start: 20120710, end: 20120710
  4. ENDOXAN [Concomitant]
     Indication: BREAST CANCER
     Route: 041
     Dates: start: 20120807, end: 20120807

REACTIONS (2)
  - Conjunctival oedema [Recovered/Resolved]
  - Conjunctival hyperaemia [Recovered/Resolved]
